FAERS Safety Report 4788163-X (Version None)
Quarter: 2005Q4

REPORT INFORMATION
  Report Type: 
  Country: None (occurrence: None)
  Receive Date: 20051005
  Receipt Date: 20050927
  Transmission Date: 20060501
  Serious: Yes (Hospitalization)
  Sender: FDA-Public Use
  Company Number: US-JNJFOC-20050906497

PATIENT
  Age: 85 Year
  Sex: Female

DRUGS (4)
  1. TYLENOL (CAPLET) [Suspect]
     Route: 048
  2. TYLENOL (CAPLET) [Suspect]
     Route: 048
  3. THYROID REPLACEMENT [Concomitant]
  4. EXTRA STRENGTH TYLENOL [Concomitant]

REACTIONS (1)
  - PALPITATIONS [None]
